FAERS Safety Report 6380337-X (Version None)
Quarter: 2009Q3

REPORT INFORMATION
  Report Type: 
  Country: None (occurrence: None)
  Receive Date: 20090929
  Receipt Date: 20090918
  Transmission Date: 20100115
  Serious: Yes (Other)
  Sender: FDA-Public Use
  Company Number: CH-BAYER-200932376GPV

PATIENT
  Age: 23 Year
  Sex: Female

DRUGS (3)
  1. MIRENA [Suspect]
     Indication: DRUG USE FOR UNKNOWN INDICATION
     Route: 015
  2. LAMICTAL [Concomitant]
     Indication: BIPOLAR I DISORDER
  3. ZYPREXA [Concomitant]
     Indication: BIPOLAR I DISORDER

REACTIONS (1)
  - OBSESSIVE THOUGHTS [None]
